FAERS Safety Report 21199418 (Version 1)
Quarter: 2022Q3

REPORT INFORMATION
  Report Type: Spontaneous
  Country: SG (occurrence: SG)
  Receive Date: 20220811
  Receipt Date: 20220811
  Transmission Date: 20221027
  Serious: Yes (Other)
  Sender: FDA-Public Use
  Company Number: SG-JNJFOC-20220808318

PATIENT
  Age: 70 Year
  Sex: Female

DRUGS (2)
  1. SPORANOX [Suspect]
     Active Substance: ITRACONAZOLE
     Indication: Product used for unknown indication
     Route: 065
  2. AUGMENTIN [Suspect]
     Active Substance: AMOXICILLIN\CLAVULANATE POTASSIUM
     Indication: Product used for unknown indication
     Route: 065

REACTIONS (1)
  - Drug reaction with eosinophilia and systemic symptoms [Unknown]

NARRATIVE: CASE EVENT DATE: 20220719
